FAERS Safety Report 5327587-9 (Version None)
Quarter: 2007Q2

REPORT INFORMATION
  Report Type: 
  Country: None (occurrence: None)
  Receive Date: 20070517
  Receipt Date: 20070123
  Transmission Date: 20071010
  Serious: Yes (Hospitalization, Other)
  Sender: FDA-Public Use
  Company Number: US-JNJFOC-20070104054

PATIENT
  Age: 26 Year
  Sex: Male

DRUGS (3)
  1. TRAMADOL HCL [Suspect]
     Indication: INTENTIONAL DRUG MISUSE
     Route: 048
  2. BLEACH [Suspect]
     Indication: INTENTIONAL DRUG MISUSE
     Route: 048
  3. DETERGENT [Suspect]
     Indication: INTENTIONAL DRUG MISUSE
     Route: 065

REACTIONS (4)
  - ABNORMAL BEHAVIOUR [None]
  - INTENTIONAL SELF-INJURY [None]
  - POISONING DELIBERATE [None]
  - SUBSTANCE ABUSE [None]
